FAERS Safety Report 5314994-3 (Version None)
Quarter: 2007Q2

REPORT INFORMATION
  Report Type: 
  Country: None (occurrence: None)
  Receive Date: 20070502
  Receipt Date: 20070430
  Transmission Date: 20071010
  Serious: Yes (Death, Hospitalization)
  Sender: FDA-Public Use
  Company Number: US-SANOFI-SYNTHELABO-F01200700526

PATIENT
  Sex: Male

DRUGS (16)
  1. IMODIUM [Concomitant]
     Dates: start: 20070314
  2. VICODIN [Concomitant]
  3. ATIVAN [Concomitant]
     Dates: start: 20070314
  4. COMPAZINE [Concomitant]
     Dates: start: 20070314
  5. PROTONIX [Concomitant]
     Dates: start: 20070314
  6. MAGIC MOUTHWASH [Concomitant]
     Dates: start: 20070328
  7. GLYBURIDE [Concomitant]
  8. METFORMIN HCL [Concomitant]
  9. LIPITOR [Concomitant]
     Dates: start: 19920615
  10. LOTREL [Concomitant]
     Dates: start: 19920615
  11. ASPIRIN [Concomitant]
     Dates: start: 19920615
  12. PLAVIX [Concomitant]
     Dates: start: 19920615
  13. TOPROL-XL [Concomitant]
     Dates: start: 19920615
  14. CAPECITABINE [Suspect]
     Dosage: D1-D8
     Route: 048
  15. BEVACIZUMAB [Suspect]
     Route: 042
  16. OXALIPLATIN [Suspect]
     Indication: COLORECTAL CANCER METASTATIC
     Route: 042

REACTIONS (1)
  - SEPSIS [None]
